FAERS Safety Report 5060405-5 (Version None)
Quarter: 2006Q3

REPORT INFORMATION
  Report Type: 
  Country: None (occurrence: None)
  Receive Date: 20060725
  Receipt Date: 20060717
  Transmission Date: 20061208
  Serious: Yes (Other)
  Sender: FDA-Public Use
  Company Number: PHEH2006US09121

PATIENT
  Sex: Male

DRUGS (1)
  1. METHYLPHENIDATE HCL [Suspect]

REACTIONS (4)
  - ANXIETY DISORDER [None]
  - BLOOD PRESSURE INCREASED [None]
  - HEART RATE INCREASED [None]
  - PANIC DISORDER [None]
